FAERS Safety Report 4865786-0 (Version None)
Quarter: 2005Q4

REPORT INFORMATION
  Report Type: 
  Country: None (occurrence: None)
  Receive Date: 20051223
  Receipt Date: 20051118
  Transmission Date: 20060501
  Serious: Yes (Other)
  Sender: FDA-Public Use
  Company Number: PHEH2005US12806

PATIENT
  Age: 82 Year
  Sex: Male

DRUGS (7)
  1. CARDIAC THERAPY [Concomitant]
  2. ZOMETA [Suspect]
     Indication: PROSTATE CANCER METASTATIC
     Dosage: 4 MG PER MONTH
     Dates: start: 20030223, end: 20051027
  3. ISOSORBIDE [Concomitant]
     Dosage: 20 MG, TID
     Route: 048
  4. NAPROXEN [Concomitant]
     Dosage: 375 MG, BID
  5. SYNTHROID [Concomitant]
     Dosage: 0.5 UNK, QD
  6. ATENOLOL [Concomitant]
     Dosage: 12.5 MG, QD
  7. ASPIRIN [Concomitant]
     Dosage: 81 MG, QD

REACTIONS (3)
  - DIZZINESS [None]
  - FALL [None]
  - LOSS OF CONSCIOUSNESS [None]
